FAERS Safety Report 21823044 (Version 3)
Quarter: 2023Q1

REPORT INFORMATION
  Report Type: Spontaneous
  Country: US (occurrence: US)
  Receive Date: 20230105
  Receipt Date: 20230306
  Transmission Date: 20230417
  Serious: Yes (Hospitalization, Other)
  Sender: FDA-Public Use
  Company Number: US-PFIZER INC-PV202300001667

PATIENT
  Age: 61 Year
  Sex: Female
  Weight: 134.26 kg

DRUGS (3)
  1. ELIQUIS [Suspect]
     Active Substance: APIXABAN
     Dosage: 5 MG
  2. DILTIAZEM [Suspect]
     Active Substance: DILTIAZEM
     Indication: Cardiac disorder
     Dosage: 120 MG ER
     Dates: start: 20201210
  3. STAVUDINE [Suspect]
     Active Substance: STAVUDINE
     Dosage: UNK

REACTIONS (1)
  - Skin burning sensation [Unknown]
